FAERS Safety Report 4968277-1 (Version None)
Quarter: 2006Q2

REPORT INFORMATION
  Report Type: 
  Country: None (occurrence: None)
  Receive Date: 20060405
  Receipt Date: 20060324
  Transmission Date: 20061013
  Serious: Yes (Disabling, Other)
  Sender: FDA-Public Use
  Company Number: 2006035982

PATIENT
  Age: 34 Year
  Sex: Male

DRUGS (4)
  1. MEDROL [Suspect]
     Indication: SCIATICA
     Dosage: 48 MG (16 MG, 3 IN 1 D), ORAL
     Route: 048
     Dates: start: 20050101, end: 20050208
  2. PREDNISONE TAB [Suspect]
     Indication: INTERVERTEBRAL DISC OPERATION
     Dosage: 60 MG (1 D), ORAL
     Route: 048
     Dates: start: 20050122, end: 20050101
  3. ZOLOFT (SERTRALINE) [Concomitant]
  4. STRESAM (ETIFOXINE) [Concomitant]

REACTIONS (1)
  - OSTEONECROSIS [None]
